FAERS Safety Report 16232361 (Version 2)
Quarter: 2019Q2

REPORT INFORMATION
  Report Type: Report from Study
  Country: US (occurrence: US)
  Receive Date: 20190424
  Receipt Date: 20190523
  Transmission Date: 20190711
  Serious: Yes (Death)
  Sender: FDA-Public Use
  Company Number: PHEH2019US017476

PATIENT
  Age: 83 Year
  Sex: Male
  Weight: 66.21 kg

DRUGS (1)
  1. ENTRESTO [Suspect]
     Active Substance: SACUBITRIL\VALSARTAN
     Indication: PRODUCT USED FOR UNKNOWN INDICATION
     Dosage: UNK, QD
     Route: 048
     Dates: start: 20170412

REACTIONS (2)
  - Fall [Fatal]
  - Product prescribing error [Unknown]

NARRATIVE: CASE EVENT DATE: 20170412
